FAERS Safety Report 7027343-X (Version None)
Quarter: 2010Q4

REPORT INFORMATION
  Report Type: 
  Country: None (occurrence: None)
  Receive Date: 20101004
  Receipt Date: 20100921
  Transmission Date: 20110411
  Serious: Yes (Other)
  Sender: FDA-Public Use
  Company Number: PHEH2007US07643

PATIENT
  Sex: Female

DRUGS (7)
  1. ZOMETA [Suspect]
     Indication: MULTIPLE MYELOMA
  2. BISPHOSPHONATES [Suspect]
  3. LISINOPRIL [Concomitant]
  4. MS CONTIN [Concomitant]
  5. COMPAZINE [Concomitant]
  6. CALCIUM [Concomitant]
  7. MULTI-VITAMINS [Concomitant]

REACTIONS (6)
  - ALVEOLOPLASTY [None]
  - DEBRIDEMENT [None]
  - GINGIVAL PAIN [None]
  - LOCALISED INFECTION [None]
  - OSTEOMYELITIS [None]
  - OSTEONECROSIS OF JAW [None]
